FAERS Safety Report 12070345 (Version 1)
Quarter: 2016Q1

REPORT INFORMATION
  Report Type: Spontaneous
  Country: PL (occurrence: PL)
  Receive Date: 20160211
  Receipt Date: 20160211
  Transmission Date: 20160526
  Serious: Yes (Other)
  Sender: FDA-Public Use
  Company Number: PHHY2016PL016187

PATIENT
  Age: 26 Year
  Sex: Female
  Weight: 50 kg

DRUGS (4)
  1. METYPRED ^ORION^ [Concomitant]
     Indication: RHEUMATOID ARTHRITIS
     Dosage: 4 MG, QD
     Route: 048
     Dates: start: 20131031
  2. ACIDUM FOLICUM [Concomitant]
     Active Substance: FOLIC ACID
     Indication: RHEUMATOID ARTHRITIS
     Dosage: 15 UKN, QW
     Route: 048
     Dates: start: 20131031, end: 20131114
  3. KETONAL [Concomitant]
     Active Substance: KETOPROFEN
     Indication: RHEUMATOID ARTHRITIS
     Dosage: 100 MG
     Route: 048
     Dates: start: 20131031
  4. METHOTREXATE [Suspect]
     Active Substance: METHOTREXATE
     Indication: RHEUMATOID ARTHRITIS
     Dosage: 15 MG, QW
     Route: 048
     Dates: start: 20131031, end: 20131114

REACTIONS (4)
  - Asthenia [Recovered/Resolved]
  - Chest discomfort [Recovered/Resolved]
  - Hyperhidrosis [Recovered/Resolved]
  - Dyspnoea [Recovered/Resolved]

NARRATIVE: CASE EVENT DATE: 20131031
